FAERS Safety Report 11848607 (Version 2)
Quarter: 2015Q4

REPORT INFORMATION
  Report Type: Spontaneous
  Country: US (occurrence: US)
  Receive Date: 20151218
  Receipt Date: 20151230
  Transmission Date: 20160305
  Serious: Yes (Death)
  Sender: FDA-Public Use
  Company Number: US-ROCHE-1679502

PATIENT
  Sex: Female

DRUGS (1)
  1. CELLCEPT [Suspect]
     Active Substance: MYCOPHENOLATE MOFETIL\MYCOPHENOLATE MOFETIL HYDROCHLORIDE
     Indication: ILL-DEFINED DISORDER
     Dosage: FORM STRENGHT: 200 MG/ML, MORNING AND EVENING
     Route: 048
     Dates: start: 20140806

REACTIONS (1)
  - Amyotrophic lateral sclerosis [Fatal]
